FAERS Safety Report 13650237 (Version 2)
Quarter: 2017Q3

REPORT INFORMATION
  Report Type: Report from Study
  Country: US (occurrence: US)
  Receive Date: 20170614
  Receipt Date: 20170707
  Transmission Date: 20171127
  Serious: No
  Sender: FDA-Public Use
  Company Number: PHEH2017US017872

PATIENT
  Age: 53 Year
  Sex: Female
  Weight: 84.35 kg

DRUGS (5)
  1. CHOLECALCIFEROL [Concomitant]
     Active Substance: CHOLECALCIFEROL
     Indication: PRODUCT USED FOR UNKNOWN INDICATION
     Dosage: 5000 U, QOD
     Route: 048
     Dates: start: 20141111
  2. NAPROXEN. [Concomitant]
     Active Substance: NAPROXEN
     Indication: PRODUCT USED FOR UNKNOWN INDICATION
     Dosage: 2 DF, QD
     Route: 005
  3. COSENTYX [Suspect]
     Active Substance: SECUKINUMAB
     Indication: PSORIASIS
     Dosage: 150 MG, QMO
     Route: 065
     Dates: end: 20170414
  4. OMEGA 3 [Concomitant]
     Active Substance: OMEGA-3 FATTY ACIDS
     Indication: PRODUCT USED FOR UNKNOWN INDICATION
     Dosage: UNK
     Route: 065
  5. COSENTYX [Suspect]
     Active Substance: SECUKINUMAB
     Indication: PSORIATIC ARTHROPATHY

REACTIONS (28)
  - Capillary disorder [Unknown]
  - Anxiety [Recovering/Resolving]
  - Gastrooesophageal reflux disease [Recovering/Resolving]
  - Eyelid oedema [Unknown]
  - Varicose vein [Unknown]
  - Vitamin D deficiency [Unknown]
  - Hyperlipidaemia [Unknown]
  - Low density lipoprotein increased [Unknown]
  - Oedema peripheral [Unknown]
  - Aggression [Unknown]
  - Hypersensitivity [Unknown]
  - Blood pressure increased [Unknown]
  - Very low density lipoprotein increased [Unknown]
  - Restrictive pulmonary disease [Unknown]
  - Depression [Recovering/Resolving]
  - Blood creatine phosphokinase increased [Unknown]
  - Blood cholesterol increased [Unknown]
  - Psoriasis [Unknown]
  - Therapy non-responder [Unknown]
  - Peripheral swelling [Recovering/Resolving]
  - Eye swelling [Unknown]
  - Obesity [Not Recovered/Not Resolved]
  - Dyspnoea [Recovered/Resolved]
  - Weight increased [Unknown]
  - Abdominal distension [Unknown]
  - Fluid overload [Unknown]
  - Blood triglycerides increased [Unknown]
  - High density lipoprotein increased [Unknown]

NARRATIVE: CASE EVENT DATE: 20170425
